FAERS Safety Report 8368659-4 (Version None)
Quarter: 2012Q2

REPORT INFORMATION
  Report Type: 
  Country: None (occurrence: None)
  Receive Date: 20120518
  Receipt Date: 20120511
  Transmission Date: 20120825
  Serious: No
  Sender: FDA-Public Use
  Company Number: US-BIOGENIDEC-2012BI016653

PATIENT
  Sex: Female

DRUGS (5)
  1. FLUOXETINE [Concomitant]
     Indication: FATIGUE
  2. VITAMIN B-12 [Concomitant]
     Indication: PRODUCT USED FOR UNKNOWN INDICATION
  3. TYSABRI [Suspect]
     Indication: MULTIPLE SCLEROSIS
     Route: 042
     Dates: start: 20111110
  4. CYMBALTA [Concomitant]
     Indication: PAIN
     Dates: start: 20110301
  5. VITAMIN D [Concomitant]
     Indication: PRODUCT USED FOR UNKNOWN INDICATION
     Dates: start: 20110101

REACTIONS (6)
  - FEELING COLD [None]
  - AGITATION [None]
  - INSOMNIA [None]
  - SLUGGISHNESS [None]
  - MEMORY IMPAIRMENT [None]
  - PAIN IN EXTREMITY [None]
